FAERS Safety Report 26187033 (Version 1)
Quarter: 2025Q4

REPORT INFORMATION
  Report Type: Report from Study
  Country: US (occurrence: US)
  Receive Date: 20251222
  Receipt Date: 20251222
  Transmission Date: 20260117
  Serious: No
  Sender: PFIZER
  Company Number: US-PFIZER INC-202500242633

PATIENT
  Age: 61 Year
  Sex: Female
  Weight: 89.342 kg

DRUGS (13)
  1. GENOTROPIN [Suspect]
     Active Substance: SOMATROPIN
     Indication: Brain injury
     Dosage: 0.6 MG, ONE TIME A DAY, EVERYDAY
  2. GENOTROPIN [Suspect]
     Active Substance: SOMATROPIN
     Indication: Hypothalamo-pituitary disorder
  3. COLLAGEN [Concomitant]
     Active Substance: COLLAGEN
     Indication: Hypovitaminosis
     Dosage: 6 G, 2X/DAY
  4. COLLAGEN [Concomitant]
     Active Substance: COLLAGEN
     Indication: Mineral deficiency
     Dosage: 2 DF
  5. PRASTERONE [Concomitant]
     Active Substance: PRASTERONE
     Indication: Hypovitaminosis
     Dosage: 100 MG
  6. PRASTERONE [Concomitant]
     Active Substance: PRASTERONE
     Indication: Mineral deficiency
  7. LEVOTHYROXINE [Concomitant]
     Active Substance: LEVOTHYROXINE
     Indication: Brain injury
     Dosage: 25 UG
  8. LEVOTHYROXINE [Concomitant]
     Active Substance: LEVOTHYROXINE
     Indication: Thyroid disorder
  9. PREGABALIN [Concomitant]
     Active Substance: PREGABALIN
     Indication: Neuropathy peripheral
     Dosage: 50 MG, 2X/DAY
  10. PREGABALIN [Concomitant]
     Active Substance: PREGABALIN
     Dosage: 150 MG, 2X/DAY
  11. SIMVASTATIN [Concomitant]
     Active Substance: SIMVASTATIN
     Indication: Blood cholesterol abnormal
     Dosage: 20 MG, 1X/DAY
  12. ESCITALOPRAM [Concomitant]
     Active Substance: ESCITALOPRAM OXALATE
     Indication: Depression
     Dosage: 20 MG, ONE AT NIGHT
  13. NP THYROID [Concomitant]
     Active Substance: LEVOTHYROXINE\LIOTHYRONINE
     Indication: Brain injury
     Dosage: 120 MG

REACTIONS (3)
  - Drug dose omission by device [Unknown]
  - Device information output issue [Unknown]
  - Device leakage [Unknown]
